FAERS Safety Report 13574478 (Version 2)
Quarter: 2017Q3

REPORT INFORMATION
  Report Type: Spontaneous
  Country: US (occurrence: US)
  Receive Date: 20170523
  Receipt Date: 20170714
  Transmission Date: 20171127
  Serious: No
  Sender: FDA-Public Use
  Company Number: US-ELI_LILLY_AND_COMPANY-US201705006300

PATIENT
  Age: 46 Year
  Sex: Female

DRUGS (5)
  1. TRULICITY [Suspect]
     Active Substance: DULAGLUTIDE
     Dosage: 1.50 MG, WEEKLY (1/W)
     Route: 058
  2. FARXIGA [Concomitant]
     Active Substance: DAPAGLIFLOZIN PROPANEDIOL
     Indication: TYPE 2 DIABETES MELLITUS
  3. TRULICITY [Suspect]
     Active Substance: DULAGLUTIDE
     Indication: TYPE 2 DIABETES MELLITUS
     Dosage: 1.50 MG, WEEKLY (1/W)
     Route: 058
     Dates: start: 201512
  4. TRULICITY [Suspect]
     Active Substance: DULAGLUTIDE
     Dosage: 1.50 MG, WEEKLY (1/W)
     Route: 065
  5. METFORMIN [Concomitant]
     Active Substance: METFORMIN HYDROCHLORIDE
     Indication: TYPE 2 DIABETES MELLITUS

REACTIONS (6)
  - Blood glucose increased [Unknown]
  - Incorrect dose administered [Unknown]
  - Injection site mass [Unknown]
  - Incorrect dose administered [Unknown]
  - Drug dose omission [Unknown]
  - Injection site pain [Unknown]

NARRATIVE: CASE EVENT DATE: 20170513
